FAERS Safety Report 6968955-9 (Version None)
Quarter: 2010Q3

REPORT INFORMATION
  Report Type: 
  Country: None (occurrence: None)
  Receive Date: 20100903
  Receipt Date: 20100903
  Transmission Date: 20110219
  Serious: Yes (Hospitalization)
  Sender: FDA-Public Use
  Company Number: None

PATIENT
  Age: 65 Year
  Sex: Male
  Weight: 117.48 kg

DRUGS (1)
  1. CEPHALEXIN [Suspect]
     Indication: ANTIBIOTIC PROPHYLAXIS
     Dosage: 500 MG QID PO
     Route: 048
     Dates: start: 20100520, end: 20100521

REACTIONS (3)
  - ANGIOEDEMA [None]
  - DYSPNOEA [None]
  - RASH [None]
